FAERS Safety Report 25726129 (Version 1)
Quarter: 2025Q3

REPORT INFORMATION
  Report Type: Spontaneous
  Country: US (occurrence: US)
  Receive Date: 20250826
  Receipt Date: 20250826
  Transmission Date: 20251020
  Serious: No
  Sender: BAYER HEALTHCARE PHARMACEUTICALS INC.
  Company Number: US-BAYER-2025A109795

PATIENT
  Sex: Female

DRUGS (12)
  1. BETASERON [Suspect]
     Active Substance: INTERFERON BETA-1B
     Indication: Secondary progressive multiple sclerosis
  2. KEPPRA [Concomitant]
     Active Substance: LEVETIRACETAM
  3. LACOSAMIDE [Concomitant]
     Active Substance: LACOSAMIDE
  4. BACLOFEN [Concomitant]
     Active Substance: BACLOFEN
  5. BAYER LOW DOSE [Concomitant]
     Active Substance: ASPIRIN
  6. TRINTELLIX [Concomitant]
     Active Substance: VORTIOXETINE HYDROBROMIDE
  7. COLACE [Concomitant]
     Active Substance: DOCUSATE SODIUM
  8. VALACYCLOVIR [Concomitant]
     Active Substance: VALACYCLOVIR HYDROCHLORIDE
  9. HIPREX [Concomitant]
     Active Substance: METHENAMINE HIPPURATE
  10. NAYZILAM [Concomitant]
     Active Substance: MIDAZOLAM
  11. RITUXAN [Concomitant]
     Active Substance: RITUXIMAB
  12. OCREVUS [Concomitant]
     Active Substance: OCRELIZUMAB

REACTIONS (1)
  - Drug ineffective [Unknown]
